FAERS Safety Report 7993557-5 (Version None)
Quarter: 2011Q4

REPORT INFORMATION
  Report Type: 
  Country: None (occurrence: None)
  Receive Date: 20111219
  Receipt Date: 20111213
  Transmission Date: 20120403
  Serious: Yes (Other)
  Sender: FDA-Public Use
  Company Number: BE-ABBOTT-11P-013-0731426-00

PATIENT
  Sex: Female

DRUGS (3)
  1. ASAFLOW [Concomitant]
     Indication: PRODUCT USED FOR UNKNOWN INDICATION
  2. HUMIRA [Suspect]
     Indication: PSORIASIS
     Route: 058
     Dates: start: 20090526
  3. ALPRAZOLAM [Concomitant]
     Indication: PRODUCT USED FOR UNKNOWN INDICATION

REACTIONS (19)
  - OROPHARYNGEAL PLAQUE [None]
  - ASTHENIA [None]
  - ANXIETY [None]
  - GINGIVAL BLEEDING [None]
  - THROMBOCYTOPENIA [None]
  - EAR PAIN [None]
  - METASTATIC SQUAMOUS CELL CARCINOMA [None]
  - APHAGIA [None]
  - NAUSEA [None]
  - DYSPHONIA [None]
  - DYSPHAGIA [None]
  - SUPRAVENTRICULAR TACHYCARDIA [None]
  - NERVOUSNESS [None]
  - TONGUE DISORDER [None]
  - ANAEMIA [None]
  - LEUKOPENIA [None]
  - OROPHARYNGEAL CANCER STAGE UNSPECIFIED [None]
  - NECROSIS [None]
  - VOMITING [None]
